FAERS Safety Report 5216435-3 (Version None)
Quarter: 2007Q1

REPORT INFORMATION
  Report Type: 
  Country: None (occurrence: None)
  Receive Date: 20070118
  Receipt Date: 20070108
  Transmission Date: 20070707
  Serious: Yes (Hospitalization)
  Sender: FDA-Public Use
  Company Number: 2007-00089

PATIENT
  Age: 42 Year
  Sex: Female

DRUGS (4)
  1. TRIVORA-28 [Suspect]
     Indication: CONTRACEPTION
     Dosage: 1 TABLET, DAILY, ORAL
     Route: 048
     Dates: start: 20060101, end: 20061229
  2. ZYPREXA [Concomitant]
  3. BUSPAR [Concomitant]
  4. MULTIVITAMINS (PANTHENOL, NICOTINAMIDE, RIBOFLAVIN, RETINOL, ERGOCALCI [Concomitant]

REACTIONS (7)
  - ENDOMETRIAL HYPERTROPHY [None]
  - HAEMOGLOBIN DECREASED [None]
  - MENORRHAGIA [None]
  - METRORRHAGIA [None]
  - OEDEMA PERIPHERAL [None]
  - PAIN IN EXTREMITY [None]
  - PRESYNCOPE [None]
